FAERS Safety Report 5583190-7 (Version None)
Quarter: 2008Q1

REPORT INFORMATION
  Report Type: 
  Country: None (occurrence: None)
  Receive Date: 20080103
  Receipt Date: 20080103
  Transmission Date: 20080703
  Serious: Yes (Hospitalization)
  Sender: FDA-Public Use
  Company Number: None

PATIENT
  Age: 46 Year
  Sex: Female

DRUGS (1)
  1. NAPROXEN [Suspect]
     Indication: FIBROMYALGIA
     Dosage: 400MG  BID  PO   (DURATION:  ^FOR SOME TIME^)
     Route: 048

REACTIONS (4)
  - GASTRITIS [None]
  - HAEMATEMESIS [None]
  - MELAENA [None]
  - OESOPHAGITIS [None]
